FAERS Safety Report 7037724-6 (Version None)
Quarter: 2010Q4

REPORT INFORMATION
  Report Type: 
  Country: None (occurrence: None)
  Receive Date: 20101011
  Receipt Date: 20101008
  Transmission Date: 20110411
  Serious: Yes (Other)
  Sender: FDA-Public Use
  Company Number: US-EISAI INC.-E2020-07400-SPO-US

PATIENT
  Age: 83 Year
  Sex: Male
  Weight: 88 kg

DRUGS (2)
  1. ARICEPT [Suspect]
     Indication: PRODUCT USED FOR UNKNOWN INDICATION
     Route: 048
     Dates: end: 20100818
  2. ARICEPT [Suspect]
     Route: 048
     Dates: start: 20100809, end: 20100819

REACTIONS (3)
  - FALL [None]
  - PAIN IN EXTREMITY [None]
  - WEIGHT BEARING DIFFICULTY [None]
